FAERS Safety Report 5220626-5 (Version None)
Quarter: 2007Q1

REPORT INFORMATION
  Report Type: 
  Country: None (occurrence: None)
  Receive Date: 20070126
  Receipt Date: 20070123
  Transmission Date: 20070707
  Serious: Yes (Other)
  Sender: FDA-Public Use
  Company Number: US-BAYER-200614854BCC

PATIENT
  Age: 73 Year
  Sex: Male
  Weight: 86 kg

DRUGS (5)
  1. ALEVE [Suspect]
     Indication: ARTHRITIS
     Dosage: UNIT DOSE: 220 MG
     Route: 048
  2. TYLENOL [Suspect]
     Indication: ARTHRITIS
  3. REGLAN [Concomitant]
  4. NEXIUM [Concomitant]
  5. CHONDROITIN [Concomitant]

REACTIONS (1)
  - HAEMOPTYSIS [None]
